APPROVED DRUG PRODUCT: ADVAIR HFA
Active Ingredient: FLUTICASONE PROPIONATE; SALMETEROL XINAFOATE
Strength: 0.115MG/INH;EQ 0.021MG BASE/INH
Dosage Form/Route: AEROSOL, METERED;INHALATION
Application: N021254 | Product #002
Applicant: GLAXO GROUP LTD ENGLAND DBA GLAXOSMITHKLINE
Approved: Jun 8, 2006 | RLD: Yes | RS: Yes | Type: RX